FAERS Safety Report 11582694 (Version 1)
Quarter: 2015Q4

REPORT INFORMATION
  Report Type: Spontaneous
  Country: US (occurrence: US)
  Receive Date: 20151001
  Receipt Date: 20151001
  Transmission Date: 20160304
  Serious: No
  Sender: FDA-Public Use
  Company Number: US-ROCHE-685339

PATIENT
  Sex: Male
  Weight: 77.3 kg

DRUGS (1)
  1. PEGASYS [Suspect]
     Active Substance: PEGINTERFERON ALFA-2A
     Indication: HEPATITIS C
     Dosage: START DATE: 10-15 YEARS AGO
     Route: 065

REACTIONS (2)
  - Feeling abnormal [Unknown]
  - No therapeutic response [Unknown]

NARRATIVE: CASE EVENT DATE: 1995
